FAERS Safety Report 17912733 (Version 1)
Quarter: 2020Q2

REPORT INFORMATION
  Report Type: Spontaneous
  Country: US (occurrence: US)
  Receive Date: 20200618
  Receipt Date: 20200618
  Transmission Date: 20200714
  Serious: No
  Sender: FDA-Public Use
  Company Number: US-ITALFARMACO SPA-2086072

PATIENT
  Age: 68 Year
  Sex: Male

DRUGS (5)
  1. MAGNESIUM CHLORIDE. [Concomitant]
     Active Substance: MAGNESIUM CHLORIDE
  2. VITAMIN D [Concomitant]
     Active Substance: VITAMIN D NOS
  3. GABAPENTIN. [Concomitant]
     Active Substance: GABAPENTIN
  4. ADULT MULTIVITAMIN [Concomitant]
  5. TIGLUTIK [Suspect]
     Active Substance: RILUZOLE
     Indication: AMYOTROPHIC LATERAL SCLEROSIS
     Route: 048
     Dates: start: 20200429

REACTIONS (1)
  - Abdominal pain upper [Not Recovered/Not Resolved]
